FAERS Safety Report 6704383-9 (Version None)
Quarter: 2010Q2

REPORT INFORMATION
  Report Type: 
  Country: None (occurrence: None)
  Receive Date: 20100430
  Receipt Date: 20100427
  Transmission Date: 20101027
  Serious: Yes (Death, Life-Threatening, Hospitalization)
  Sender: FDA-Public Use
  Company Number: US-ELI_LILLY_AND_COMPANY-US200912002736

PATIENT
  Sex: Female
  Weight: 77.098 kg

DRUGS (15)
  1. PEMETREXED [Suspect]
     Indication: NON-SMALL CELL LUNG CANCER
     Dosage: 500 MG/M2, OTHER
     Route: 042
     Dates: start: 20091120
  2. CARBOPLATIN [Suspect]
     Indication: NON-SMALL CELL LUNG CANCER
     Dosage: 6 D/F, OTHER
     Route: 042
     Dates: start: 20091120
  3. BEVACIZUMAB [Suspect]
     Indication: NON-SMALL CELL LUNG CANCER
     Dosage: 15 MG/KG, OTHER
     Route: 042
     Dates: start: 20091120
  4. DEXAMETHASONE [Concomitant]
     Indication: ANTIINFLAMMATORY THERAPY
     Dosage: 4 MG, UNKNOWN
     Route: 048
     Dates: start: 20091101
  5. EFFEXOR [Concomitant]
     Indication: DEPRESSION
     Dosage: 150 MG, DAILY (1/D)
     Route: 048
     Dates: start: 20070101
  6. FERROUS GLUCONATE [Concomitant]
     Dosage: 325 MG, DAILY (1/D)
     Route: 048
  7. FOLIC ACID [Concomitant]
     Indication: SUPPLEMENTATION THERAPY
     Dosage: UNK, UNKNOWN
     Route: 065
     Dates: start: 20091111
  8. LORAZEPAM [Concomitant]
     Indication: ANXIETY
     Dosage: 0.5 MG, UNKNOWN
     Route: 065
     Dates: start: 20071001
  9. MEDROXYPROGESTERONE ACETATE [Concomitant]
     Dosage: 10 MG, DAILY (1/D)
     Route: 048
     Dates: start: 20090401
  10. NORCO [Concomitant]
     Indication: PAIN
     Dosage: UNK, UNKNOWN
     Route: 065
     Dates: start: 20091111
  11. OXYCONTIN [Concomitant]
     Indication: PAIN
     Dosage: 10 MG, UNKNOWN
     Route: 065
     Dates: start: 20091116
  12. REGLAN [Concomitant]
     Indication: NAUSEA
     Dosage: 10 MG, UNKNOWN
     Route: 065
     Dates: start: 20091118
  13. SYMBICORT [Concomitant]
     Indication: ASTHMA
     Dosage: UNK, UNKNOWN
     Route: 065
     Dates: start: 20091001
  14. ASPIRIN [Concomitant]
     Indication: PROPHYLAXIS
     Dosage: UNK, UNKNOWN
     Route: 065
  15. VITAMIN B-12 [Concomitant]
     Indication: PROPHYLAXIS
     Dosage: UNK, UNK
     Dates: start: 20091111

REACTIONS (3)
  - BRONCHIAL FISTULA [None]
  - EMPYEMA [None]
  - RESPIRATORY FAILURE [None]
